FAERS Safety Report 11883290 (Version 1)
Quarter: 2015Q4

REPORT INFORMATION
  Report Type: Spontaneous
  Country: US (occurrence: US)
  Receive Date: 20151231
  Receipt Date: 20151231
  Transmission Date: 20160305
  Serious: Yes (Hospitalization)
  Sender: FDA-Public Use
  Company Number: US-PFIZER INC-2015474323

PATIENT
  Age: 9 Year
  Sex: Female

DRUGS (17)
  1. DIPHENHYDRAMINE. [Suspect]
     Active Substance: DIPHENHYDRAMINE
     Indication: RASH
     Dosage: 25 MG, DAILY (EVERY NIGHT AT BEDTIME)
     Route: 048
  2. NITAZOXANIDE [Concomitant]
     Active Substance: NITAZOXANIDE
     Indication: DIARRHOEA
     Dosage: 200 MG, 2X/DAY (10 ML EVERY 12 H)
     Route: 048
  3. HYOSCYAMINE. [Suspect]
     Active Substance: HYOSCYAMINE
     Indication: ABDOMINAL PAIN UPPER
  4. MONTELUKAST [Suspect]
     Active Substance: MONTELUKAST SODIUM
     Dosage: 5 MG, DAILY (EVERY NIGHT AT BEDTIME)
     Route: 048
  5. RISPERIDONE. [Concomitant]
     Active Substance: RISPERIDONE
     Dosage: 0.375 MG, DAILY (0.125 MG EVERY MORNING AND 0.25 MG EVERY EVENING)
  6. MELATONIN [Concomitant]
     Active Substance: MELATONIN
     Dosage: 3 MG, DAILY (EVERY NIGHT AT BEDTIME)
     Route: 048
  7. PROMETHAZINE [Concomitant]
     Active Substance: PROMETHAZINE\PROMETHAZINE HYDROCHLORIDE
     Indication: NAUSEA
     Dosage: 12.5 MG (1 TABLET EVERY 4 H)
     Route: 048
  8. FAMOTIDINE. [Concomitant]
     Active Substance: FAMOTIDINE
     Dosage: 10 MG, 2X/DAY (1 ML EVERY 12 H)
     Route: 042
  9. ONDANSETRON [Suspect]
     Active Substance: ONDANSETRON
     Dosage: 4 MG, 4X/DAY
     Route: 048
  10. OMEPRAZOLE. [Suspect]
     Active Substance: OMEPRAZOLE
     Dosage: 20 MG, DAILY
     Route: 048
  11. ACETAMINOPHEN. [Concomitant]
     Active Substance: ACETAMINOPHEN
     Dosage: 320 MG, (10 ML EVERY 4 H)
     Route: 048
  12. SERTRALINE HCL [Suspect]
     Active Substance: SERTRALINE HYDROCHLORIDE
     Indication: ANXIETY
     Dosage: 6.25 MG, UNK
     Route: 048
  13. SERTRALINE HCL [Suspect]
     Active Substance: SERTRALINE HYDROCHLORIDE
     Dosage: 12.5 MG, DAILY (EVERY MORNING)
     Route: 048
  14. HYOSCYAMINE. [Suspect]
     Active Substance: HYOSCYAMINE
     Indication: DIARRHOEA
     Dosage: 0.125 MG, 2X/DAY
     Route: 048
  15. SUCRALFATE. [Concomitant]
     Active Substance: SUCRALFATE
     Dosage: UNK
  16. RISPERIDONE. [Concomitant]
     Active Substance: RISPERIDONE
     Dosage: 0.25 MG, 2X/DAY
     Route: 048
  17. PROMETHAZINE [Concomitant]
     Active Substance: PROMETHAZINE\PROMETHAZINE HYDROCHLORIDE
     Indication: VOMITING

REACTIONS (2)
  - Toxicity to various agents [Recovering/Resolving]
  - Serotonin syndrome [Recovering/Resolving]
